FAERS Safety Report 5907290-4 (Version None)
Quarter: 2008Q4

REPORT INFORMATION
  Report Type: 
  Country: None (occurrence: None)
  Receive Date: 20081003
  Receipt Date: 20080925
  Transmission Date: 20090506
  Serious: Yes (Hospitalization)
  Sender: FDA-Public Use
  Company Number: ES-AVENTIS-200815236EU

PATIENT
  Age: 86 Year
  Sex: Male

DRUGS (6)
  1. FUROSEMIDE [Suspect]
     Route: 048
     Dates: end: 20080115
  2. DIGOXIN [Suspect]
     Route: 048
     Dates: end: 20080107
  3. TROMALYT [Suspect]
     Route: 048
     Dates: end: 20080115
  4. OMEPRAZOLE [Suspect]
     Route: 048
     Dates: end: 20080115
  5. BOI K [Concomitant]
     Route: 048
     Dates: start: 20070501, end: 20080115
  6. FLUMIL                             /00082801/ [Concomitant]
     Route: 048
     Dates: end: 20080115

REACTIONS (2)
  - CARDIOACTIVE DRUG LEVEL INCREASED [None]
  - DRUG INTERACTION [None]
